FAERS Safety Report 7065108-3 (Version None)
Quarter: 2010Q4

REPORT INFORMATION
  Report Type: 
  Country: None (occurrence: None)
  Receive Date: 20101027
  Receipt Date: 19980202
  Transmission Date: 20110411
  Serious: Yes (Hospitalization, Congenital Anomaly, Other)
  Sender: FDA-Public Use
  Company Number: US-ROCHE-93114

PATIENT

DRUGS (1)
  1. ACCUTANE [Suspect]
     Dates: start: 19920101, end: 19920101

REACTIONS (11)
  - ABDOMINAL PAIN [None]
  - BRONCHITIS [None]
  - CONSTIPATION [None]
  - DYSPHEMIA [None]
  - GROWTH RETARDATION [None]
  - HYPERMETROPIA [None]
  - JAUNDICE NEONATAL [None]
  - OTITIS MEDIA [None]
  - RENAL HYPOPLASIA [None]
  - RHINITIS ALLERGIC [None]
  - VARICELLA [None]
